FAERS Safety Report 23980250 (Version 1)
Quarter: 2024Q2

REPORT INFORMATION
  Report Type: Spontaneous
  Country: US (occurrence: US)
  Receive Date: 20240617
  Receipt Date: 20240617
  Transmission Date: 20240716
  Serious: Yes (Hospitalization)
  Sender: FDA-Public Use
  Company Number: US-CATALYST PHARMACEUTICALS, INC-US-CATA-24-00527

PATIENT
  Sex: Male
  Weight: 44.444 kg

DRUGS (10)
  1. FIRDAPSE [Suspect]
     Active Substance: AMIFAMPRIDINE PHOSPHATE
     Indication: Congenital myasthenic syndrome
     Dosage: 1 TABLET THREE TIMES DAILY
     Route: 048
     Dates: start: 20220323
  2. FIRDAPSE [Suspect]
     Active Substance: AMIFAMPRIDINE PHOSPHATE
     Dosage: 1.5 TABLETS THREE TIMES DAILY
     Route: 048
     Dates: start: 20240201
  3. ALBUTEROL SULFATE [Concomitant]
     Active Substance: ALBUTEROL SULFATE
     Indication: Dyspnoea
     Dosage: 2 MG THREE TIMES DAILY
     Route: 065
  4. BENADRYL ALLERGY [Concomitant]
     Active Substance: DIPHENHYDRAMINE HYDROCHLORIDE
     Indication: Hypersensitivity
     Dosage: 25 MG AS NEEDED
     Route: 065
  5. CLARITIN [Concomitant]
     Active Substance: LORATADINE
     Indication: Hypersensitivity
     Dosage: 10 MG AS NEEDED
     Route: 065
  6. FLOVENT [Concomitant]
     Active Substance: FLUTICASONE PROPIONATE
     Indication: Dyspnoea
     Dosage: 100 MCG TWICE DAILY
     Route: 065
  7. PYRIDOSTIGMINE BROMIDE [Concomitant]
     Active Substance: PYRIDOSTIGMINE BROMIDE
     Indication: Muscular weakness
     Dosage: 60MG THREE TIMES DAILY
     Route: 065
  8. PYRIDOSTIGMINE BROMIDE EXTENDED RELEASE [Concomitant]
     Active Substance: PYRIDOSTIGMINE BROMIDE
     Indication: Muscular weakness
     Dosage: 180 MG AT BEDTIME
     Route: 065
  9. SIMBRINZA [Concomitant]
     Active Substance: BRIMONIDINE TARTRATE\BRINZOLAMIDE
     Indication: Ocular hypertension
     Dosage: ONE DROP THREE TIMES DAILY
     Route: 065
  10. ZYRTEC [Concomitant]
     Active Substance: CETIRIZINE HYDROCHLORIDE
     Indication: Hypersensitivity
     Dosage: 10 MG AS NEEDED
     Route: 065

REACTIONS (2)
  - Pneumonia [Not Recovered/Not Resolved]
  - Increased bronchial secretion [Unknown]
